FAERS Safety Report 10193395 (Version 1)
Quarter: 2014Q2

REPORT INFORMATION
  Report Type: Spontaneous
  Country: US (occurrence: US)
  Receive Date: 20140524
  Receipt Date: 20140524
  Transmission Date: 20141212
  Serious: No
  Sender: FDA-Public Use
  Company Number: US-SA-2013SA114817

PATIENT
  Age: 87 Year
  Sex: Male

DRUGS (3)
  1. LANTUS SOLOSTAR [Suspect]
     Indication: TYPE 2 DIABETES MELLITUS
     Dosage: DOSE:12 UNIT(S)
     Route: 051
  2. SOLOSTAR [Concomitant]
  3. AMARYL [Concomitant]
     Route: 065

REACTIONS (5)
  - Restlessness [Unknown]
  - Sleep disorder [Recovered/Resolved]
  - Anxiety [Unknown]
  - Blood glucose increased [Unknown]
  - Drug ineffective [Unknown]
